FAERS Safety Report 8367754-3 (Version None)
Quarter: 2012Q2

REPORT INFORMATION
  Report Type: 
  Country: None (occurrence: None)
  Receive Date: 20120517
  Receipt Date: 20120511
  Transmission Date: 20120825
  Serious: Yes (Other)
  Sender: FDA-Public Use
  Company Number: JP-GLAXOSMITHKLINE-B0801437A

PATIENT
  Age: 50 Year
  Sex: Female

DRUGS (6)
  1. PAXIL [Suspect]
     Indication: PRODUCT USED FOR UNKNOWN INDICATION
     Dosage: 30MG PER DAY
     Route: 048
     Dates: start: 20110101, end: 20110301
  2. ZOLOFT [Concomitant]
     Dosage: 12.5MG PER DAY
     Route: 048
     Dates: start: 20120309
  3. ALOSENN [Concomitant]
     Route: 048
  4. PAXIL [Suspect]
     Dosage: 5MG PER DAY
     Route: 048
     Dates: start: 20110301, end: 20120101
  5. FLUNITRAZEPAM [Concomitant]
     Route: 065
  6. AMOBANTES [Concomitant]
     Route: 048

REACTIONS (4)
  - ELEVATED MOOD [None]
  - TREATMENT NONCOMPLIANCE [None]
  - EXTRAPYRAMIDAL DISORDER [None]
  - TREMOR [None]
